FAERS Safety Report 22126067 (Version 1)
Quarter: 2023Q1

REPORT INFORMATION
  Report Type: Spontaneous
  Country: US (occurrence: US)
  Receive Date: 20230322
  Receipt Date: 20230322
  Transmission Date: 20230418
  Serious: No
  Sender: FDA-Public Use
  Company Number: US-ALLERGAN-2223575US

PATIENT
  Age: 65 Year
  Sex: Female

DRUGS (1)
  1. LUMIGAN [Suspect]
     Active Substance: BIMATOPROST
     Indication: Glaucoma
     Dosage: UNK
     Route: 047
     Dates: start: 202204

REACTIONS (6)
  - Rash macular [Not Recovered/Not Resolved]
  - Dermatochalasis [Unknown]
  - Rash [Not Recovered/Not Resolved]
  - Skin wrinkling [Unknown]
  - Hypersensitivity [Unknown]
  - Erythema of eyelid [Not Recovered/Not Resolved]

NARRATIVE: CASE EVENT DATE: 20220601
